FAERS Safety Report 8370400-6 (Version None)
Quarter: 2012Q2

REPORT INFORMATION
  Report Type: 
  Country: None (occurrence: None)
  Receive Date: 20120518
  Receipt Date: 20120509
  Transmission Date: 20120825
  Serious: Yes (Other)
  Sender: FDA-Public Use
  Company Number: US-ASTRAZENECA-2008UW25878

PATIENT
  Age: 55 Year
  Sex: Male

DRUGS (2)
  1. NEXIUM [Suspect]
     Route: 048
  2. SEROQUEL [Suspect]
     Route: 048
     Dates: start: 20080805, end: 20081019

REACTIONS (7)
  - CONVULSION [None]
  - AMNESIA [None]
  - DEPRESSION [None]
  - ROAD TRAFFIC ACCIDENT [None]
  - ANXIETY [None]
  - FEELING ABNORMAL [None]
  - BRAIN INJURY [None]
